FAERS Safety Report 9342881 (Version 3)
Quarter: 2014Q2

REPORT INFORMATION
  Report Type: Report from Study
  Country: JP (occurrence: JP)
  Receive Date: 20130611
  Receipt Date: 20140512
  Transmission Date: 20141212
  Serious: Yes (Hospitalization)
  Sender: FDA-Public Use
  Company Number: JP-GLAXOSMITHKLINE-B0894557A

PATIENT
  Age: 87 Year
  Sex: Male
  Weight: 69 kg

DRUGS (6)
  1. VOTRIENT 200MG [Suspect]
     Indication: ANGIOSARCOMA
     Dosage: 800MG PER DAY
     Route: 048
     Dates: start: 20130415, end: 20130505
  2. VOTRIENT 200MG [Suspect]
     Indication: ANGIOSARCOMA
     Dosage: 200MG PER DAY
     Route: 048
     Dates: start: 20130527, end: 20130624
  3. BAKTAR [Suspect]
     Route: 048
  4. FAMOTIDINE [Concomitant]
     Route: 065
  5. UNKNOWN DRUG [Concomitant]
     Indication: HYPERTENSION
     Route: 065
  6. PREDONINE [Concomitant]
     Route: 065
     Dates: end: 20130728

REACTIONS (3)
  - Pneumonia bacterial [Recovered/Resolved]
  - Platelet count decreased [Recovered/Resolved]
  - White blood cell count decreased [Recovered/Resolved]
